FAERS Safety Report 8501895-2 (Version None)
Quarter: 2012Q3

REPORT INFORMATION
  Report Type: 
  Country: None (occurrence: None)
  Receive Date: 20120711
  Receipt Date: 20120703
  Transmission Date: 20120928
  Serious: Yes (Hospitalization, Other)
  Sender: FDA-Public Use
  Company Number: PHHY2012MX058372

PATIENT
  Sex: Female

DRUGS (4)
  1. EXFORGE [Suspect]
     Dosage: 1 DF, DAILY(VALS 160 MG, AMLO 10 MG)
     Dates: start: 20120704
  2. KETOSTERIL [Concomitant]
     Indication: AZOTAEMIA
  3. EXFORGE [Suspect]
     Indication: HYPERTENSION
     Dosage: 1 DF, DAILY(VALS 160 MG, AMLO 10 MG)
     Dates: start: 20110101, end: 20120626
  4. EPOGEN [Concomitant]

REACTIONS (7)
  - INFLAMMATION [None]
  - CHOLECYSTITIS INFECTIVE [None]
  - CHOLECYSTITIS [None]
  - PYREXIA [None]
  - ABDOMINAL DISTENSION [None]
  - GALLBLADDER ENLARGEMENT [None]
  - ABDOMINAL PAIN [None]
